FAERS Safety Report 6702389-7 (Version None)
Quarter: 2010Q2

REPORT INFORMATION
  Report Type: 
  Country: None (occurrence: None)
  Receive Date: 20100429
  Receipt Date: 20100426
  Transmission Date: 20101027
  Serious: Yes (Other)
  Sender: FDA-Public Use
  Company Number: A0801430A

PATIENT
  Sex: Female

DRUGS (6)
  1. TYKERB [Suspect]
     Dosage: 1250MG PER DAY
     Route: 048
     Dates: start: 20090807
  2. CHEMOTHERAPY [Suspect]
     Route: 042
     Dates: start: 20091201, end: 20100101
  3. LEVOTHYROXINE [Concomitant]
     Route: 065
  4. COZAAR [Concomitant]
     Route: 065
  5. CRESTOR [Concomitant]
     Route: 065
  6. XELODA [Concomitant]
     Route: 065

REACTIONS (5)
  - ALOPECIA [None]
  - BREAST CANCER METASTATIC [None]
  - DIARRHOEA [None]
  - ORAL PAIN [None]
  - STOMATITIS [None]
